FAERS Safety Report 21785584 (Version 3)
Quarter: 2023Q1

REPORT INFORMATION
  Report Type: Report from Study
  Country: JP (occurrence: JP)
  Receive Date: 20221227
  Receipt Date: 20230220
  Transmission Date: 20230417
  Serious: Yes (Hospitalization, Other)
  Sender: FDA-Public Use
  Company Number: JP-002147023-NVSJ2022JP276676

PATIENT
  Age: 9 Year
  Sex: Female
  Weight: 29.8 kg

DRUGS (26)
  1. ILARIS [Suspect]
     Active Substance: CANAKINUMAB
     Indication: Still^s disease
     Dosage: 105 MG
     Route: 065
     Dates: start: 20210123
  2. ILARIS [Suspect]
     Active Substance: CANAKINUMAB
     Dosage: 120 MG
     Route: 058
     Dates: start: 20210220
  3. ILARIS [Suspect]
     Active Substance: CANAKINUMAB
     Dosage: 120 MG
     Route: 058
     Dates: start: 20210323
  4. ILARIS [Suspect]
     Active Substance: CANAKINUMAB
     Dosage: 120 MG
     Route: 058
     Dates: start: 20210424
  5. ILARIS [Suspect]
     Active Substance: CANAKINUMAB
     Dosage: 120 MG
     Route: 058
     Dates: start: 20210522
  6. ILARIS [Suspect]
     Active Substance: CANAKINUMAB
     Dosage: 125 MG
     Route: 058
     Dates: start: 20210619
  7. ILARIS [Suspect]
     Active Substance: CANAKINUMAB
     Dosage: 125 MG
     Route: 058
     Dates: start: 20210717
  8. ILARIS [Suspect]
     Active Substance: CANAKINUMAB
     Dosage: 125 MG
     Route: 058
     Dates: start: 20210810
  9. ILARIS [Suspect]
     Active Substance: CANAKINUMAB
     Dosage: 125 MG
     Route: 058
     Dates: start: 20210904
  10. ILARIS [Suspect]
     Active Substance: CANAKINUMAB
     Dosage: 125 MG
     Route: 058
     Dates: start: 20211002
  11. ILARIS [Suspect]
     Active Substance: CANAKINUMAB
     Dosage: 125 MG
     Route: 058
     Dates: start: 20211030
  12. ILARIS [Suspect]
     Active Substance: CANAKINUMAB
     Dosage: 125 MG
     Route: 058
     Dates: start: 20211127
  13. ILARIS [Suspect]
     Active Substance: CANAKINUMAB
     Dosage: 125 MG
     Route: 058
     Dates: start: 20211225
  14. ILARIS [Suspect]
     Active Substance: CANAKINUMAB
     Dosage: 125 MG
     Route: 058
     Dates: start: 20220215
  15. ILARIS [Suspect]
     Active Substance: CANAKINUMAB
     Dosage: 125 MG
     Route: 058
     Dates: start: 20220326
  16. ILARIS [Suspect]
     Active Substance: CANAKINUMAB
     Dosage: 125 MG
     Route: 058
     Dates: start: 20220507
  17. ILARIS [Suspect]
     Active Substance: CANAKINUMAB
     Dosage: 150 MG
     Route: 058
     Dates: start: 20221109
  18. PREDONINE [Concomitant]
     Active Substance: PREDNISOLONE
     Indication: Still^s disease
     Dosage: 30 MG
     Route: 065
     Dates: start: 20210118, end: 20210123
  19. PREDONINE [Concomitant]
     Active Substance: PREDNISOLONE
     Dosage: 20 MG
     Route: 048
     Dates: start: 20210124, end: 20210206
  20. PREDONINE [Concomitant]
     Active Substance: PREDNISOLONE
     Dosage: 10 MG
     Route: 048
     Dates: start: 20210207, end: 20210220
  21. PREDONINE [Concomitant]
     Active Substance: PREDNISOLONE
     Dosage: 5 MG
     Route: 048
     Dates: start: 20210221, end: 20210323
  22. PREDONINE [Concomitant]
     Active Substance: PREDNISOLONE
     Dosage: 3 MG
     Route: 048
     Dates: start: 20210324, end: 20210424
  23. PREDONINE [Concomitant]
     Active Substance: PREDNISOLONE
     Dosage: 2 MG
     Route: 048
     Dates: start: 20210425, end: 20210522
  24. PREDONINE [Concomitant]
     Active Substance: PREDNISOLONE
     Dosage: 1 MG
     Route: 048
     Dates: start: 20210523, end: 20210717
  25. PREDONINE [Concomitant]
     Active Substance: PREDNISOLONE
     Dosage: 10 MG
     Route: 048
     Dates: start: 20220129, end: 20220208
  26. PREDONINE [Concomitant]
     Active Substance: PREDNISOLONE
     Dosage: 5 MG
     Route: 048
     Dates: start: 20220209, end: 20220215

REACTIONS (7)
  - Autoimmune hepatitis [Unknown]
  - Coronavirus infection [Recovering/Resolving]
  - Still^s disease [Recovering/Resolving]
  - Disease recurrence [Recovering/Resolving]
  - Aspartate aminotransferase increased [Unknown]
  - Alanine aminotransferase increased [Unknown]
  - Lymphadenitis [Recovering/Resolving]

NARRATIVE: CASE EVENT DATE: 20220128
